FAERS Safety Report 8952556 (Version 2)
Quarter: 2012Q4

REPORT INFORMATION
  Report Type: 
  Country: US (occurrence: US)
  Receive Date: 20121205
  Receipt Date: 20121227
  Transmission Date: 20130627
  Serious: No
  Sender: FDA-Public Use
  Company Number: US-PFIZER INC-2012305103

PATIENT
  Age: 47 Year
  Sex: Female
  Weight: 58.96 kg

DRUGS (15)
  1. LYRICA [Suspect]
     Indication: PAIN BURNING
     Dosage: 50 mg, daily
     Dates: start: 2012
  2. LYRICA [Suspect]
     Indication: NERVE PAIN
     Dosage: 100 mg, as needed
     Dates: start: 2012
  3. LYRICA [Suspect]
     Indication: SYSTEMIC LUPUS ERYTHEMATOSUS
     Dosage: 150 mg, as needed
     Dates: start: 2012
  4. LYRICA [Suspect]
     Indication: ARTHRITIS
     Dosage: UNK
     Dates: start: 2012
  5. LYRICA [Suspect]
     Indication: PAIN IN ARM
  6. LYRICA [Suspect]
     Indication: NECK PAIN
  7. LYRICA [Suspect]
     Indication: HEAD PAIN
  8. AMBIEN [Concomitant]
     Indication: SLEEP DISORDER
     Dosage: 5 mg, 1x/day
  9. AMBIEN [Concomitant]
     Indication: PAIN
  10. AMBIEN [Concomitant]
     Indication: ARTHRITIS
  11. AMBIEN [Concomitant]
     Indication: SYSTEMIC LUPUS ERYTHEMATOSUS
  12. ARMODAFINIL [Concomitant]
     Indication: FIBROMYALGIA
     Dosage: 75mg to 100 mg as needed
  13. ARMODAFINIL [Concomitant]
     Indication: FATIGUE
  14. ARMODAFINIL [Concomitant]
     Indication: ARTHRITIS
  15. ARMODAFINIL [Concomitant]
     Indication: SYSTEMIC LUPUS ERYTHEMATOSUS

REACTIONS (6)
  - Neck pain [Recovered/Resolved]
  - Headache [Recovered/Resolved]
  - Pain in extremity [Recovered/Resolved]
  - Antibody test abnormal [Unknown]
  - Feeling abnormal [Recovered/Resolved]
  - Off label use [Unknown]
